FAERS Safety Report 5567614-7 (Version None)
Quarter: 2007Q4

REPORT INFORMATION
  Report Type: 
  Country: None (occurrence: None)
  Receive Date: 20071214
  Receipt Date: 20071211
  Transmission Date: 20080405
  Serious: Yes (Death)
  Sender: FDA-Public Use
  Company Number: 163-21880-07110912

PATIENT
  Age: 62 Year
  Sex: Female

DRUGS (4)
  1. REVLIMID [Suspect]
     Indication: MALIGNANT NEOPLASM PROGRESSION
     Dosage: 15 MG, DAILY, ORAL; 5 MG M-W-F AFTER DIALYSIS, ORAL
     Route: 048
     Dates: start: 20070108, end: 20070401
  2. REVLIMID [Suspect]
     Indication: MULTIPLE MYELOMA
     Dosage: 15 MG, DAILY, ORAL; 5 MG M-W-F AFTER DIALYSIS, ORAL
     Route: 048
     Dates: start: 20070108, end: 20070401
  3. REVLIMID [Suspect]
     Indication: MALIGNANT NEOPLASM PROGRESSION
     Dosage: 15 MG, DAILY, ORAL; 5 MG M-W-F AFTER DIALYSIS, ORAL
     Route: 048
     Dates: start: 20070425, end: 20070614
  4. REVLIMID [Suspect]
     Indication: MULTIPLE MYELOMA
     Dosage: 15 MG, DAILY, ORAL; 5 MG M-W-F AFTER DIALYSIS, ORAL
     Route: 048
     Dates: start: 20070425, end: 20070614

REACTIONS (3)
  - DIALYSIS [None]
  - MALIGNANT NEOPLASM PROGRESSION [None]
  - MULTIPLE MYELOMA [None]
